FAERS Safety Report 7201538-4 (Version None)
Quarter: 2010Q4

REPORT INFORMATION
  Report Type: 
  Country: None (occurrence: None)
  Receive Date: 20101215
  Receipt Date: 20101205
  Transmission Date: 20110411
  Serious: Yes (Life-Threatening, Hospitalization)
  Sender: FDA-Public Use
  Company Number: WAES 1003USA00477

PATIENT
  Age: 17 Year
  Sex: Female
  Weight: 69.8539 kg

DRUGS (7)
  1. ISENTRESS [Suspect]
     Indication: HIV INFECTION
     Dosage: 400 MG/BID/PO
     Route: 048
     Dates: start: 20080208, end: 20090114
  2. ISENTRESS [Suspect]
     Indication: HIV INFECTION
     Dosage: 400 MG/BID/PO
     Route: 048
     Dates: end: 20100727
  3. VANCOMYCIN [Suspect]
     Indication: PYREXIA
     Dosage: /Q8H/IV
     Route: 042
     Dates: end: 20100512
  4. CEFTAZIDIME [Suspect]
     Indication: PNEUMONIA
     Dosage: /Q8H/IV
     Route: 042
     Dates: end: 20100512
  5. VALTREX [Suspect]
     Indication: PROPHYLAXIS
     Dosage: /BID/PO
     Route: 048
     Dates: end: 20100512
  6. ENALAPRIL MALEATE [Suspect]
     Indication: CARDIOMYOPATHY
     Dosage: /BID/PO
     Route: 048
     Dates: end: 20100512
  7. PENTAMIDINE ISETHIONATE [Concomitant]

REACTIONS (66)
  - AIDS ENCEPHALOPATHY [None]
  - ALOPECIA [None]
  - ANAEMIA [None]
  - APHASIA [None]
  - ARTHRALGIA [None]
  - BASE EXCESS INCREASED [None]
  - BLOOD ALBUMIN DECREASED [None]
  - BLOOD BICARBONATE DECREASED [None]
  - COAGULOPATHY [None]
  - CONJUNCTIVAL HYPERAEMIA [None]
  - DEAFNESS UNILATERAL [None]
  - DEHYDRATION [None]
  - DEPRESSION [None]
  - DIABETES MELLITUS INADEQUATE CONTROL [None]
  - DIABETIC KETOACIDOSIS [None]
  - DIARRHOEA [None]
  - DRUG INEFFECTIVE [None]
  - DRUG TOXICITY [None]
  - ELECTROCARDIOGRAM QT PROLONGED [None]
  - ELECTROLYTE IMBALANCE [None]
  - EXFOLIATIVE RASH [None]
  - FATIGUE [None]
  - FLUID OVERLOAD [None]
  - FUNGAEMIA [None]
  - HAEMOLYTIC URAEMIC SYNDROME [None]
  - HEPATIC STEATOSIS [None]
  - HERPES ZOSTER [None]
  - HUMAN RHINOVIRUS TEST POSITIVE [None]
  - HYPOKALAEMIA [None]
  - HYPONATRAEMIA [None]
  - HYPOTENSION [None]
  - INJECTION SITE REACTION [None]
  - JOINT RANGE OF MOTION DECREASED [None]
  - LUNG DISORDER [None]
  - MENORRHAGIA [None]
  - MENTAL STATUS CHANGES [None]
  - METABOLIC ACIDOSIS [None]
  - METAPNEUMOVIRUS INFECTION [None]
  - MUSCULOSKELETAL PAIN [None]
  - MYALGIA [None]
  - NYSTAGMUS [None]
  - OEDEMA PERIPHERAL [None]
  - OPPORTUNISTIC INFECTION [None]
  - OXYGEN SATURATION DECREASED [None]
  - PAIN IN EXTREMITY [None]
  - PANCREATITIS [None]
  - PLEURAL EFFUSION [None]
  - PNEUMONIA [None]
  - RASH ERYTHEMATOUS [None]
  - RASH MACULO-PAPULAR [None]
  - RASH PRURITIC [None]
  - RENAL CYST [None]
  - RENAL FAILURE ACUTE [None]
  - SELF-INJURIOUS IDEATION [None]
  - SEPSIS [None]
  - SKIN DISCOLOURATION [None]
  - SKIN INDURATION [None]
  - SWELLING FACE [None]
  - TACHYCARDIA [None]
  - TACHYPNOEA [None]
  - THROMBOCYTOPENIA [None]
  - THROMBOTIC THROMBOCYTOPENIC PURPURA [None]
  - TOOTHACHE [None]
  - TREATMENT NONCOMPLIANCE [None]
  - TREMOR [None]
  - VIOLENCE-RELATED SYMPTOM [None]
